FAERS Safety Report 24457923 (Version 1)
Quarter: 2024Q4

REPORT INFORMATION
  Report Type: Spontaneous
  Country: US (occurrence: US)
  Receive Date: 20241018
  Receipt Date: 20241018
  Transmission Date: 20250114
  Serious: No
  Sender: GLAXOSMITHKLINE
  Company Number: US-GSKCCFUS-Case-02122519_AE-117069

PATIENT
  Sex: Female

DRUGS (1)
  1. NUCALA [Suspect]
     Active Substance: MEPOLIZUMAB
     Indication: Asthma
     Dosage: UNK

REACTIONS (7)
  - Urticaria [Unknown]
  - Arthralgia [Unknown]
  - Illness [Unknown]
  - Pain in extremity [Unknown]
  - Oedema peripheral [Unknown]
  - Malaise [Unknown]
  - Gait inability [Unknown]
